FAERS Safety Report 9896276 (Version 1)
Quarter: 2014Q1

REPORT INFORMATION
  Report Type: Spontaneous
  Country: US (occurrence: US)
  Receive Date: 20140213
  Receipt Date: 20140213
  Transmission Date: 20141002
  Serious: No
  Sender: FDA-Public Use
  Company Number: US-BRISTOL-MYERS SQUIBB COMPANY-18817221

PATIENT
  Age: 60 Year
  Sex: Female

DRUGS (2)
  1. ABATACEPT SUBQ INJECTION 125MG/ML [Suspect]
     Dosage: LAST INJ: 04APR2013
  2. ORENCIA [Suspect]
     Route: 042
     Dates: start: 201212

REACTIONS (2)
  - Bronchitis [Unknown]
  - Tooth abscess [Unknown]
